FAERS Safety Report 6045010-6 (Version None)
Quarter: 2009Q1

REPORT INFORMATION
  Report Type: 
  Country: None (occurrence: None)
  Receive Date: 20090116
  Receipt Date: 20090116
  Transmission Date: 20090719
  Serious: Yes (Other)
  Sender: FDA-Public Use
  Company Number: None

PATIENT
  Age: 55 Year
  Sex: Female
  Weight: 102.9665 kg

DRUGS (1)
  1. VITAMIN D [Suspect]
     Dosage: 1 TAB 1 P WEEK
     Dates: start: 20081101, end: 20081201

REACTIONS (1)
  - HEART RATE INCREASED [None]
